APPROVED DRUG PRODUCT: DEXTROAMP SACCHARATE, AMP ASPARTATE, DEXTROAMP SULFATE AND AMP SULFATE
Active Ingredient: AMPHETAMINE ASPARTATE; AMPHETAMINE SULFATE; DEXTROAMPHETAMINE SACCHARATE; DEXTROAMPHETAMINE SULFATE
Strength: 1.25MG;1.25MG;1.25MG;1.25MG
Dosage Form/Route: CAPSULE, EXTENDED RELEASE;ORAL
Application: A214959 | Product #001 | TE Code: AB1
Applicant: ASCENT PHARMACEUTICALS INC
Approved: Sep 29, 2021 | RLD: No | RS: No | Type: RX